FAERS Safety Report 9092299 (Version 1)
Quarter: 2013Q1

REPORT INFORMATION
  Report Type: Spontaneous
  Country: US (occurrence: US)
  Receive Date: 20130218
  Receipt Date: 20130218
  Transmission Date: 20140127
  Serious: No
  Sender: FDA-Public Use
  Company Number: US-ABBOTT-12P-163-0913408-00

PATIENT
  Sex: Male
  Weight: 82.63 kg

DRUGS (7)
  1. SIMCOR 500MG/20MG [Suspect]
     Indication: BLOOD CHOLESTEROL INCREASED
     Dosage: 500/20
     Dates: start: 2009, end: 201201
  2. SIMCOR 500MG/20MG [Suspect]
     Dosage: 500/20
     Dates: start: 201201
  3. NIASPAN (COATED) 500MG [Suspect]
     Indication: BLOOD CHOLESTEROL INCREASED
     Route: 048
     Dates: start: 201201
  4. METFORMIN [Concomitant]
     Indication: METABOLIC SYNDROME
     Dates: start: 2009
  5. LOVAZA [Concomitant]
     Indication: BLOOD CHOLESTEROL INCREASED
     Dates: start: 200901
  6. TESTOSTERONE [Concomitant]
     Indication: BLOOD TESTOSTERONE DECREASED
     Dosage: 6 PUMPS PER DAY
     Dates: start: 201007
  7. PLAVIX [Concomitant]
     Indication: CARDIOVASCULAR DISORDER
     Dates: start: 200812

REACTIONS (2)
  - Blood glucose increased [Not Recovered/Not Resolved]
  - Pruritus [Recovering/Resolving]
